FAERS Safety Report 6188709-3 (Version None)
Quarter: 2009Q2

REPORT INFORMATION
  Report Type: 
  Country: None (occurrence: None)
  Receive Date: 20090513
  Receipt Date: 20090504
  Transmission Date: 20091009
  Serious: Yes (Hospitalization)
  Sender: FDA-Public Use
  Company Number: US-WATSON-2009-03183

PATIENT
  Age: 75 Year
  Sex: Female

DRUGS (5)
  1. FLUOROURACIL [Suspect]
     Indication: COLON CANCER
     Dosage: UNKNOWN
  2. IRINOTECAN HYDROCHLORIDE [Suspect]
     Indication: COLON CANCER METASTATIC
     Dosage: UNKNOWN
  3. OXALIPLATIN [Suspect]
     Indication: COLON CANCER
  4. CETUXIMAB [Suspect]
     Indication: COLON CANCER
  5. CAPECITABINE [Suspect]
     Indication: COLON CANCER METASTATIC

REACTIONS (1)
  - STRESS CARDIOMYOPATHY [None]
